FAERS Safety Report 21284644 (Version 1)
Quarter: 2022Q3

REPORT INFORMATION
  Report Type: Spontaneous
  Country: US (occurrence: US)
  Receive Date: 20220902
  Receipt Date: 20220902
  Transmission Date: 20221027
  Serious: Yes (Hospitalization)
  Sender: FDA-Public Use
  Company Number: US-NOVOPROD-952309

PATIENT
  Age: 84 Year
  Sex: Male

DRUGS (2)
  1. LEVEMIR [Suspect]
     Active Substance: INSULIN DETEMIR
     Indication: Type 2 diabetes mellitus
     Dosage: UNK (SLIDING SCALE)
     Route: 058
  2. AMPICILLIN [Concomitant]
     Active Substance: AMPICILLIN
     Dosage: 100 MG, QID

REACTIONS (4)
  - COVID-19 pneumonia [Recovering/Resolving]
  - Bacteraemia [Recovering/Resolving]
  - Cellulitis [Recovering/Resolving]
  - Blood glucose increased [Recovering/Resolving]

NARRATIVE: CASE EVENT DATE: 20220621
